FAERS Safety Report 10248843 (Version 2)
Quarter: 2018Q2

REPORT INFORMATION
  Report Type: Report from Study
  Country: US (occurrence: US)
  Receive Date: 20140620
  Receipt Date: 20180510
  Transmission Date: 20180711
  Serious: Yes (Other)
  Sender: FDA-Public Use
  Company Number: US-ROCHE-1416765

PATIENT
  Age: 9 Year
  Sex: Male
  Weight: 39.7 kg

DRUGS (3)
  1. NUTROPIN AQ [Suspect]
     Active Substance: SOMATROPIN
     Route: 058
     Dates: end: 201402
  2. NUTROPIN AQ [Suspect]
     Active Substance: SOMATROPIN
     Route: 058
  3. NUTROPIN AQ [Suspect]
     Active Substance: SOMATROPIN
     Indication: GROWTH HORMONE DEFICIENCY
     Route: 058
     Dates: start: 201402

REACTIONS (10)
  - Lymphadenopathy [Unknown]
  - Adipomastia [Unknown]
  - Splint application [Unknown]
  - Headache [Unknown]
  - Pain in extremity [Unknown]
  - Arthralgia [Unknown]
  - Ligament sprain [Unknown]
  - Rhinorrhoea [Unknown]
  - Acanthosis nigricans [Unknown]
  - Arthralgia [Unknown]

NARRATIVE: CASE EVENT DATE: 201402
